FAERS Safety Report 18937191 (Version 1)
Quarter: 2021Q1

REPORT INFORMATION
  Report Type: Spontaneous
  Country: IN (occurrence: US)
  Receive Date: 20210224
  Receipt Date: 20210224
  Transmission Date: 20210420
  Serious: Yes (Other)
  Sender: FDA-Public Use
  Company Number: US-ELI_LILLY_AND_COMPANY-US202102006447

PATIENT
  Sex: Female

DRUGS (7)
  1. FLUOXETINE HYDROCHLORIDE. [Suspect]
     Active Substance: FLUOXETINE HYDROCHLORIDE
     Indication: DYSKINESIA
     Dosage: 50 MG, UNKNOWN
     Route: 065
  2. TETRABENAZINE. [Suspect]
     Active Substance: TETRABENAZINE
     Indication: DYSKINESIA
     Dosage: 25 MG, EVERY 8 HRS
     Route: 065
     Dates: start: 2011
  3. TETRABENAZINE. [Suspect]
     Active Substance: TETRABENAZINE
     Indication: TARDIVE DYSKINESIA
     Dosage: 12.5 MG, BID
     Route: 065
     Dates: start: 201106, end: 2011
  4. TETRABENAZINE. [Suspect]
     Active Substance: TETRABENAZINE
     Dosage: 12.5 MG, EVERY 8 HRS
     Route: 065
     Dates: start: 2011
  5. QUETIAPINE. [Suspect]
     Active Substance: QUETIAPINE
     Indication: DYSKINESIA
     Dosage: 50 MG, UNKNOWN
     Route: 065
     Dates: start: 201101
  6. TRAZODONE [Concomitant]
     Active Substance: TRAZODONE HYDROCHLORIDE
     Indication: DYSKINESIA
     Dosage: NIGHTLY
     Route: 065
  7. QUETIAPINE. [Suspect]
     Active Substance: QUETIAPINE
     Dosage: 200 MG
     Route: 065
     Dates: start: 2011

REACTIONS (7)
  - Bradykinesia [Recovering/Resolving]
  - Off label use [Unknown]
  - Hip fracture [Unknown]
  - Tardive dyskinesia [Recovering/Resolving]
  - Fall [Unknown]
  - Parkinsonism [Recovering/Resolving]
  - Muscle rigidity [Recovering/Resolving]

NARRATIVE: CASE EVENT DATE: 2011
